FAERS Safety Report 12179727 (Version 1)
Quarter: 2016Q1

REPORT INFORMATION
  Report Type: Spontaneous
  Country: US (occurrence: None)
  Receive Date: 20160314
  Receipt Date: 20160314
  Transmission Date: 20160526
  Serious: Yes (Hospitalization)
  Sender: FDA-Public Use
  Company Number: None

PATIENT
  Age: 36 Year
  Sex: Female
  Weight: 73.2 kg

DRUGS (2)
  1. ERIBULIN [Suspect]
     Active Substance: ERIBULIN
     Indication: BREAST CANCER METASTATIC
     Dosage: 1.1MG/M2 DAY 1 + DAY 8 IV
     Route: 042
     Dates: start: 20160307
  2. EVEROLIMUS [Suspect]
     Active Substance: EVEROLIMUS
     Indication: BREAST CANCER METASTATIC
     Dosage: 5MG DAILY X 21 DAYS ORAL
     Route: 048
     Dates: start: 20160307, end: 20160309

REACTIONS (8)
  - Dyspnoea [None]
  - Dizziness [None]
  - Oxygen saturation decreased [None]
  - Metastases to lung [None]
  - Chest discomfort [None]
  - Heart rate increased [None]
  - Respiratory rate increased [None]
  - Pulmonary embolism [None]

NARRATIVE: CASE EVENT DATE: 20160309
